FAERS Safety Report 5217833-4 (Version None)
Quarter: 2007Q1

REPORT INFORMATION
  Report Type: 
  Country: None (occurrence: None)
  Receive Date: 20061130
  Receipt Date: 20060901
  Transmission Date: 20070707
  Serious: Yes (Hospitalization)
  Sender: FDA-Public Use
  Company Number: US200607003532

PATIENT
  Age: 10 Year
  Sex: Male
  Weight: 55.3 kg

DRUGS (1)
  1. ZYPREXA [Suspect]
     Dosage: 2.5 G, UNK, ORAL
     Route: 048
     Dates: start: 20051128, end: 20060626

REACTIONS (2)
  - DIABETES MELLITUS INSULIN-DEPENDENT [None]
  - WEIGHT INCREASED [None]
